FAERS Safety Report 5577377-7 (Version None)
Quarter: 2007Q4

REPORT INFORMATION
  Report Type: 
  Country: None (occurrence: None)
  Receive Date: 20071130
  Receipt Date: 20070724
  Transmission Date: 20080405
  Serious: No
  Sender: FDA-Public Use
  Company Number: 2005PV000184

PATIENT
  Age: 44 Year
  Sex: Female
  Weight: 136.5 kg

DRUGS (3)
  1. EXENATIDE (EXENATIDE) PEN, DISPOSABLE [Suspect]
     Indication: TYPE 2 DIABETES MELLITUS
     Dosage: 5 UG, 2/D, SUBCUTANEOUS; 10 UG, SUBCUTANEOUS
     Route: 058
     Dates: start: 20050601
  2. EXENATIDE (EXENATIDE) PEN, DISPOSABLE [Suspect]
     Indication: TYPE 2 DIABETES MELLITUS
     Dosage: 5 UG, 2/D, SUBCUTANEOUS; 10 UG, SUBCUTANEOUS
     Route: 058
     Dates: start: 20050627
  3. GLUCOPHAGE [Concomitant]

REACTIONS (3)
  - INJECTION SITE BRUISING [None]
  - INJECTION SITE INDURATION [None]
  - MUSCLE INJURY [None]
